FAERS Safety Report 5213583-9 (Version None)
Quarter: 2007Q1

REPORT INFORMATION
  Report Type: 
  Country: None (occurrence: None)
  Receive Date: 20070119
  Receipt Date: 20070102
  Transmission Date: 20070707
  Serious: Yes (Other)
  Sender: FDA-Public Use
  Company Number: GB-SHR-GB-2006-027451

PATIENT
  Age: 68 Year
  Sex: Male
  Weight: 70 kg

DRUGS (3)
  1. CAMPATH [Suspect]
     Indication: CHRONIC LYMPHOCYTIC LEUKAEMIA RECURRENT
     Dosage: 30 MG, UNK
     Route: 058
     Dates: start: 20060703, end: 20060904
  2. VALCYTE [Concomitant]
     Indication: PROPHYLAXIS
     Dosage: 900 MG, UNK
     Route: 048
     Dates: start: 20060728
  3. COTRIM [Suspect]
     Indication: PROPHYLAXIS
     Dosage: 480 MG, UNK
     Route: 048
     Dates: start: 20060621

REACTIONS (2)
  - ERYTHEMA MULTIFORME [None]
  - THROMBOCYTOPENIA [None]
